FAERS Safety Report 6183706-6 (Version None)
Quarter: 2009Q2

REPORT INFORMATION
  Report Type: 
  Country: None (occurrence: None)
  Receive Date: 20090506
  Receipt Date: 20090506
  Transmission Date: 20091009
  Serious: Yes (Hospitalization)
  Sender: FDA-Public Use
  Company Number: None

PATIENT
  Sex: Female
  Weight: 81.8 kg

DRUGS (18)
  1. CYTARABINE [Suspect]
     Dosage: 7734 MG
  2. ETOPOSIDE [Suspect]
     Dosage: 580 MG
  3. IFOSFAMIDE [Suspect]
     Dosage: 14500 MG
  4. MESNA [Suspect]
     Dosage: 14500 MG
  5. RITUXIMAB(MOAB C2B8 ANTI CD20, CHIMERIC) [Suspect]
     Dosage: 728 MG
  6. ACYCLOVIR [Concomitant]
  7. AMBIEN [Concomitant]
  8. ATRIPLA [Concomitant]
  9. BACTRIM [Concomitant]
  10. CIPRO [Concomitant]
  11. COLACE [Concomitant]
  12. HYDROMORPHONE HCL [Concomitant]
  13. MORPHINE SULFATE [Concomitant]
  14. NEUPOGEN [Concomitant]
  15. PRILOSEC [Concomitant]
  16. RESTORIL [Concomitant]
  17. ZITHROMAX [Concomitant]
  18. ZOFRAN [Concomitant]

REACTIONS (1)
  - FEBRILE NEUTROPENIA [None]
